FAERS Safety Report 10016659 (Version 1)
Quarter: 2014Q1

REPORT INFORMATION
  Report Type: Spontaneous
  Country: US (occurrence: US)
  Receive Date: 20140317
  Receipt Date: 20140317
  Transmission Date: 20141002
  Serious: Yes (Hospitalization, Other)
  Sender: FDA-Public Use
  Company Number: US-ELI_LILLY_AND_COMPANY-US201403002671

PATIENT
  Age: 29 Year
  Sex: Female
  Weight: 131.52 kg

DRUGS (1)
  1. HUMALOG LISPRO [Suspect]
     Indication: PRODUCT USED FOR UNKNOWN INDICATION
     Route: 058

REACTIONS (6)
  - Blood glucose increased [Recovered/Resolved]
  - Pollakiuria [Unknown]
  - Thirst [Unknown]
  - Dermatitis contact [Unknown]
  - Skin irritation [Unknown]
  - Pruritus [Unknown]
